FAERS Safety Report 5720623-7 (Version None)
Quarter: 2008Q2

REPORT INFORMATION
  Report Type: 
  Country: None (occurrence: None)
  Receive Date: 20080429
  Receipt Date: 20080414
  Transmission Date: 20081010
  Serious: Yes (Death, Life-Threatening)
  Sender: FDA-Public Use
  Company Number: FR-JNJFOC-20080403660

PATIENT
  Sex: Male

DRUGS (14)
  1. MOTILYO [Suspect]
     Indication: NAUSEA
     Route: 048
  2. OFLOCET [Suspect]
     Indication: INFLAMMATION
     Route: 048
     Dates: start: 20080220, end: 20080225
  3. OFLOXACINE [Suspect]
     Indication: INFLAMMATION
     Route: 042
     Dates: start: 20080210, end: 20080220
  4. CEFTRIAXONE [Suspect]
     Indication: INFLAMMATION
     Route: 042
     Dates: start: 20080210, end: 20080222
  5. DOLIPRANE [Suspect]
     Indication: PYREXIA
     Route: 048
  6. CASODEX [Suspect]
     Indication: PROSTATE CANCER
     Route: 048
  7. ZOLADEX [Suspect]
     Indication: PROSTATE CANCER METASTATIC
     Route: 058
  8. LOVENOX [Suspect]
     Indication: DRUG USE FOR UNKNOWN INDICATION
     Route: 058
     Dates: start: 20080214, end: 20080225
  9. TADENAN [Suspect]
     Indication: DRUG USE FOR UNKNOWN INDICATION
     Route: 048
     Dates: start: 20080125, end: 20080226
  10. SEROPRAM [Concomitant]
     Route: 048
  11. TRIATEC [Concomitant]
     Route: 048
  12. ISOPTINE LP [Concomitant]
     Route: 048
  13. ASPIRIN [Concomitant]
     Route: 048
  14. PERMIXON [Concomitant]
     Route: 048
     Dates: start: 20080124, end: 20080125

REACTIONS (2)
  - AGRANULOCYTOSIS [None]
  - MYOCARDIAL INFARCTION [None]
